FAERS Safety Report 7337751-5 (Version None)
Quarter: 2011Q1

REPORT INFORMATION
  Report Type: 
  Country: None (occurrence: None)
  Receive Date: 20110210
  Receipt Date: 20101208
  Transmission Date: 20110831
  Serious: Yes (Other)
  Sender: FDA-Public Use
  Company Number: 1000017683

PATIENT
  Age: 45 Year
  Sex: Male

DRUGS (8)
  1. METOPROLOL SUCCINATE [Concomitant]
  2. SAVELLA [Suspect]
     Indication: FIBROMYALGIA
     Dosage: SEE IMAGE
     Route: 048
     Dates: start: 20100501
  3. SAVELLA [Suspect]
     Indication: FIBROMYALGIA
     Dosage: SEE IMAGE
     Route: 048
     Dates: start: 20100501
  4. GABAPENTIN (GABAPENTIN) (GABAPENTIN) [Concomitant]
  5. BENTYL (DICYCLOVERINE HYDROCHLORIDE) (DICYCLOVERINE HYDROCHLORIDE) [Concomitant]
  6. FLUOXETINE [Concomitant]
  7. FERROUS SULFATE (FERROUS SULFATE) (FERROUS SULFATE) [Concomitant]
  8. NORVASC [Concomitant]

REACTIONS (1)
  - WEIGHT DECREASED [None]
